FAERS Safety Report 22928000 (Version 3)
Quarter: 2023Q4

REPORT INFORMATION
  Report Type: Spontaneous
  Country: GB (occurrence: GB)
  Receive Date: 20230911
  Receipt Date: 20231006
  Transmission Date: 20240109
  Serious: Yes (Death, Other)
  Sender: FDA-Public Use
  Company Number: None

PATIENT
  Age: 72 Year
  Sex: Female
  Weight: 165 kg

DRUGS (2)
  1. OLANZAPINE [Suspect]
     Active Substance: OLANZAPINE
     Indication: Adverse drug reaction
     Dosage: 17.5 MG, ONCE PER DAY
     Route: 065
  2. OLANZAPINE [Suspect]
     Active Substance: OLANZAPINE
     Indication: Major depression

REACTIONS (4)
  - Colitis ischaemic [Fatal]
  - Constipation [Not Recovered/Not Resolved]
  - Perforation [Unknown]
  - Anal incontinence [Recovered/Resolved]

NARRATIVE: CASE EVENT DATE: 20211108
